FAERS Safety Report 12639872 (Version 1)
Quarter: 2016Q3

REPORT INFORMATION
  Report Type: Spontaneous
  Country: ES (occurrence: ES)
  Receive Date: 20160810
  Receipt Date: 20160810
  Transmission Date: 20161109
  Serious: Yes (Other)
  Sender: FDA-Public Use
  Company Number: PHHY2016ES096599

PATIENT
  Age: 35 Year
  Sex: Female

DRUGS (2)
  1. IFN BETA [Suspect]
     Active Substance: INTERFERON BETA
     Indication: RELAPSING-REMITTING MULTIPLE SCLEROSIS
     Dosage: UNK
     Route: 065
  2. GILENYA [Suspect]
     Active Substance: FINGOLIMOD HYDROCHLORIDE
     Indication: RELAPSING-REMITTING MULTIPLE SCLEROSIS
     Dosage: UNK
     Route: 065
     Dates: start: 2010, end: 2014

REACTIONS (6)
  - Maternal exposure before pregnancy [None]
  - Multiple sclerosis relapse [Unknown]
  - Myelitis [None]
  - Spinal cord disorder [None]
  - Rebound effect [Unknown]
  - Disease progression [None]
